FAERS Safety Report 4702781-6 (Version None)
Quarter: 2005Q2

REPORT INFORMATION
  Report Type: 
  Country: None (occurrence: None)
  Receive Date: 20050629
  Receipt Date: 20050511
  Transmission Date: 20051028
  Serious: Yes (Hospitalization)
  Sender: FDA-Public Use
  Company Number: US-MERCK-0505USA01563

PATIENT
  Age: 44 Year
  Sex: Female

DRUGS (6)
  1. ZOCOR [Suspect]
     Route: 048
     Dates: start: 20040224, end: 20040331
  2. DIOVAN [Concomitant]
     Route: 065
     Dates: end: 20040301
  3. DIOVAN [Concomitant]
     Route: 065
     Dates: start: 20040401
  4. PREMARIN [Concomitant]
     Route: 065
  5. NEURONTIN [Concomitant]
     Route: 065
  6. LORTAB [Concomitant]
     Route: 065

REACTIONS (10)
  - ANAEMIA [None]
  - BLOOD THYROID STIMULATING HORMONE DECREASED [None]
  - HYPERPHOSPHATAEMIA [None]
  - HYPERTENSION [None]
  - HYPOCALCAEMIA [None]
  - HYPONATRAEMIA [None]
  - HYPOTENSION [None]
  - MENTAL STATUS CHANGES [None]
  - RENAL FAILURE ACUTE [None]
  - RHABDOMYOLYSIS [None]
